FAERS Safety Report 10523464 (Version 2)
Quarter: 2015Q3

REPORT INFORMATION
  Report Type: Spontaneous
  Country: DK (occurrence: DK)
  Receive Date: 20141017
  Receipt Date: 20150909
  Transmission Date: 20151125
  Serious: Yes (Hospitalization)
  Sender: FDA-Public Use
  Company Number: DK-AMGEN-DNKSP2014079014

PATIENT
  Age: 48 Year
  Sex: Female

DRUGS (8)
  1. ZOMETA [Suspect]
     Active Substance: ZOLEDRONIC ACID
     Indication: METASTASES TO BONE
     Dosage: UNK
     Route: 042
     Dates: start: 20130424, end: 20140601
  2. SERTRALINE [Concomitant]
     Active Substance: SERTRALINE HYDROCHLORIDE
     Indication: ANXIETY
     Dosage: UNK
     Dates: start: 201205
  3. LETROZOL [Concomitant]
     Active Substance: LETROZOLE
     Dosage: 2.5 MG, QD
  4. XGEVA [Suspect]
     Active Substance: DENOSUMAB
     Indication: METASTASES TO BONE
     Dosage: 120 MG, Q4WK
     Route: 065
     Dates: start: 20130911
  5. ZOMETA [Suspect]
     Active Substance: ZOLEDRONIC ACID
     Indication: METASTASES TO BONE
  6. EXEMESTANE. [Concomitant]
     Active Substance: EXEMESTANE
     Dates: start: 201205
  7. BONDRONAT                          /01304701/ [Suspect]
     Active Substance: IBANDRONIC ACID
     Indication: METASTASES TO BONE
     Dosage: 50 MG, QD
     Route: 048
     Dates: start: 20120501, end: 20130101
  8. MARZINE [Concomitant]
     Active Substance: CYCLIZINE HYDROCHLORIDE
     Indication: DIZZINESS
     Dosage: 2.5 MG, UNK
     Dates: start: 201208

REACTIONS (4)
  - Exposed bone in jaw [Unknown]
  - Pain in jaw [Unknown]
  - Osteonecrosis of jaw [Recovered/Resolved]
  - Sequestrectomy [Recovered/Resolved]

NARRATIVE: CASE EVENT DATE: 2014
